FAERS Safety Report 4576614-5 (Version None)
Quarter: 2005Q1

REPORT INFORMATION
  Report Type: 
  Country: None (occurrence: None)
  Receive Date: 20050210
  Receipt Date: 20050127
  Transmission Date: 20050727
  Serious: Yes (Other)
  Sender: FDA-Public Use
  Company Number: PT-JNJFOC-20050201727

PATIENT
  Age: 50 Year
  Sex: Male

DRUGS (7)
  1. INFLIXIMAB [Suspect]
     Dosage: THIRD INFSUION, WEEK 6
     Route: 042
  2. INFLIXIMAB [Suspect]
     Dosage: SECOND INFUSION, WEEK 2
     Route: 042
  3. INFLIXIMAB [Suspect]
     Indication: CROHN'S DISEASE
     Dosage: FIRST INFUSION, WEEK 0
     Route: 042
  4. AZATHIPRINE [Concomitant]
  5. PREDNISONE [Concomitant]
  6. CIPROFLOXACIN [Concomitant]
  7. MESALAMINE [Concomitant]

REACTIONS (2)
  - ARTHRITIS [None]
  - DISSEMINATED TUBERCULOSIS [None]
